FAERS Safety Report 12337619 (Version 1)
Quarter: 2016Q2

REPORT INFORMATION
  Report Type: Spontaneous
  Country: US (occurrence: US)
  Receive Date: 20160505
  Receipt Date: 20160505
  Transmission Date: 20160815
  Serious: Yes (Other)
  Sender: FDA-Public Use
  Company Number: US-DRREDDYS-USA/USA/16/0077809

PATIENT

DRUGS (1)
  1. DECITABINE. [Suspect]
     Active Substance: DECITABINE
     Indication: MYELODYSPLASTIC SYNDROME
     Route: 065

REACTIONS (2)
  - Haemorrhage intracranial [Unknown]
  - Thrombocytopenia [Unknown]
